FAERS Safety Report 11473831 (Version 1)
Quarter: 2015Q3

REPORT INFORMATION
  Report Type: Spontaneous
  Country: US (occurrence: US)
  Receive Date: 20150908
  Receipt Date: 20150908
  Transmission Date: 20151125
  Serious: No
  Sender: FDA-Public Use
  Company Number: US-JAZZ-2013-US-000180

PATIENT
  Sex: Female
  Weight: 61 kg

DRUGS (10)
  1. XYREM [Suspect]
     Active Substance: SODIUM OXYBATE
     Dosage: 9GM 1ST DOSE/ 6 GM 2ND DOSE/ 6 GM 3RD DOSE
     Route: 048
     Dates: start: 20130712
  2. XYREM [Suspect]
     Active Substance: SODIUM OXYBATE
     Indication: SLEEP DISORDER
     Dosage: 2.25 G, BID
     Route: 048
     Dates: start: 20071123, end: 2008
  3. ESTRADIOL. [Concomitant]
     Active Substance: ESTRADIOL
     Indication: HORMONE REPLACEMENT THERAPY
     Dosage: 0.075 MG, UNK
     Route: 062
  4. XYREM [Suspect]
     Active Substance: SODIUM OXYBATE
     Dosage: 4.5 G, BID
     Route: 048
     Dates: start: 20080613, end: 2010
  5. XYREM [Suspect]
     Active Substance: SODIUM OXYBATE
     Dosage: 6 G, TID
     Route: 048
     Dates: start: 20120127, end: 2013
  6. XYREM [Suspect]
     Active Substance: SODIUM OXYBATE
     Dosage: 6 G, BID
     Route: 048
     Dates: start: 20100714, end: 2012
  7. XYREM [Suspect]
     Active Substance: SODIUM OXYBATE
     Dosage: 4.5 G FIRST DOSE/ 2.25 G SECOND DOSE
     Route: 048
     Dates: start: 20080212, end: 2008
  8. XYREM [Suspect]
     Active Substance: SODIUM OXYBATE
     Dosage: 6 G FIRST DOSE/ 4.5 G SECOND DOSE
     Route: 048
     Dates: start: 20100521, end: 2010
  9. ARMOUR THYROID [Concomitant]
     Active Substance: THYROID, PORCINE\THYROID, UNSPECIFIED
     Indication: THYROID DISORDER
     Dosage: 15 MG, QD
     Route: 048
  10. LEVOTHYROXINE. [Concomitant]
     Active Substance: LEVOTHYROXINE
     Indication: THYROID DISORDER
     Dosage: 50 ?G, QD
     Route: 048

REACTIONS (5)
  - Insomnia [Not Recovered/Not Resolved]
  - Delirium [Not Recovered/Not Resolved]
  - Disorientation [Not Recovered/Not Resolved]
  - Asthenia [Not Recovered/Not Resolved]
  - Prescribed overdose [Unknown]

NARRATIVE: CASE EVENT DATE: 2012
